FAERS Safety Report 6157331-7 (Version None)
Quarter: 2009Q2

REPORT INFORMATION
  Report Type: 
  Country: None (occurrence: None)
  Receive Date: 20090416
  Receipt Date: 20090413
  Transmission Date: 20091009
  Serious: No
  Sender: FDA-Public Use
  Company Number: US-B.I. PHARMACEUTICALS,INC./RIDGEFIELD-2009-BP-03655BP

PATIENT
  Sex: Female

DRUGS (9)
  1. SPIRIVA [Suspect]
     Indication: EMPHYSEMA
     Dosage: 18MCG
     Route: 055
     Dates: start: 20070101
  2. BACLOFEN [Concomitant]
     Indication: MULTIPLE SCLEROSIS
  3. INDERAL [Concomitant]
     Indication: MIGRAINE
  4. TOPAMAX [Concomitant]
     Indication: MIGRAINE
  5. SYNTHROID [Concomitant]
     Indication: HYPOTHYROIDISM
  6. CYTOMEL [Concomitant]
     Indication: HYPOTHYROIDISM
  7. IMITREX [Concomitant]
     Indication: MIGRAINE
  8. SINGULAIR [Concomitant]
     Indication: EMPHYSEMA
  9. VALIUM [Concomitant]
     Indication: VERTIGO
     Dosage: 2.5MG

REACTIONS (3)
  - COUGH [None]
  - NASAL CONGESTION [None]
  - VOMITING [None]
